FAERS Safety Report 4899529-1 (Version None)
Quarter: 2006Q1

REPORT INFORMATION
  Report Type: 
  Country: None (occurrence: None)
  Receive Date: 20060131
  Receipt Date: 20060117
  Transmission Date: 20060701
  Serious: Yes (Hospitalization)
  Sender: FDA-Public Use
  Company Number: 217974

PATIENT
  Age: 48 Year
  Sex: Male

DRUGS (6)
  1. EFALIZUMAB [Suspect]
     Indication: PSORIASIS
     Dosage: 1MG/KG, 1/WEEK, SUBCUTANEOUS
     Route: 058
     Dates: start: 20050613, end: 20050829
  2. MOXONIDINE [Concomitant]
  3. IRBESARTAN [Concomitant]
  4. ALLOPURINOL [Concomitant]
  5. CLOTRIMAZOLE [Concomitant]
  6. TOPICAL MEDICATION             (DERMATOLOGIC AGENT NOS) [Concomitant]

REACTIONS (6)
  - CONDITION AGGRAVATED [None]
  - ERYTHRODERMIC PSORIASIS [None]
  - LYMPHADENOPATHY [None]
  - PSORIATIC ARTHROPATHY [None]
  - PYREXIA [None]
  - SYNOVIAL CYST [None]
